FAERS Safety Report 21574758 (Version 8)
Quarter: 2025Q2

REPORT INFORMATION
  Report Type: Spontaneous
  Country: PL (occurrence: PL)
  Receive Date: 20221109
  Receipt Date: 20250512
  Transmission Date: 20250717
  Serious: Yes (Hospitalization, Other)
  Sender: BRISTOL-MYERS SQUIBB COMPANY
  Company Number: PL-BRISTOL-MYERS SQUIBB COMPANY-2022-123067

PATIENT
  Age: 60 Year
  Sex: Male

DRUGS (43)
  1. APIXABAN [Suspect]
     Active Substance: APIXABAN
     Indication: Cardiac failure chronic
  2. APIXABAN [Suspect]
     Active Substance: APIXABAN
  3. APIXABAN [Suspect]
     Active Substance: APIXABAN
  4. APIXABAN [Suspect]
     Active Substance: APIXABAN
  5. APIXABAN [Suspect]
     Active Substance: APIXABAN
  6. APIXABAN [Suspect]
     Active Substance: APIXABAN
  7. APIXABAN [Suspect]
     Active Substance: APIXABAN
  8. APIXABAN [Suspect]
     Active Substance: APIXABAN
  9. APIXABAN [Suspect]
     Active Substance: APIXABAN
  10. APIXABAN [Suspect]
     Active Substance: APIXABAN
     Dosage: 2.5 MG, QD
  11. APIXABAN [Suspect]
     Active Substance: APIXABAN
  12. APIXABAN [Suspect]
     Active Substance: APIXABAN
  13. APIXABAN [Suspect]
     Active Substance: APIXABAN
  14. APIXABAN [Suspect]
     Active Substance: APIXABAN
  15. APIXABAN [Suspect]
     Active Substance: APIXABAN
  16. APIXABAN [Suspect]
     Active Substance: APIXABAN
  17. APIXABAN [Suspect]
     Active Substance: APIXABAN
  18. APIXABAN [Suspect]
     Active Substance: APIXABAN
  19. ASPIRIN [Suspect]
     Active Substance: ASPIRIN
     Indication: Cardiac failure chronic
  20. TORSEMIDE [Suspect]
     Active Substance: TORSEMIDE
     Indication: Cardiac failure chronic
  21. TORSEMIDE [Suspect]
     Active Substance: TORSEMIDE
     Indication: Cardiac failure
  22. PANTOPRAZOLE SODIUM [Suspect]
     Active Substance: PANTOPRAZOLE SODIUM
     Indication: Cardiac failure chronic
  23. PANTOPRAZOLE SODIUM [Suspect]
     Active Substance: PANTOPRAZOLE SODIUM
  24. ROSUVASTATIN [Suspect]
     Active Substance: ROSUVASTATIN
     Indication: Cardiac failure chronic
     Route: 048
  25. CLOPIDOGREL BISULFATE [Suspect]
     Active Substance: CLOPIDOGREL BISULFATE
     Indication: Cardiac failure chronic
  26. CLOPIDOGREL BESILATE [Suspect]
     Active Substance: CLOPIDOGREL BESILATE
     Indication: Cardiac failure chronic
  27. FUROSEMIDE [Suspect]
     Active Substance: FUROSEMIDE
     Indication: Cardiac failure chronic
  28. FUROSEMIDE [Suspect]
     Active Substance: FUROSEMIDE
     Indication: Cardiac failure
  29. CLOPIDOGREL [Suspect]
     Active Substance: CLOPIDOGREL BISULFATE
     Indication: Cardiac failure chronic
     Dosage: 75 MG, QD
  30. RAMIPRIL [Suspect]
     Active Substance: RAMIPRIL
     Indication: Cardiac failure chronic
     Dosage: 20 MG QD
  31. RAMIPRIL [Suspect]
     Active Substance: RAMIPRIL
  32. RAMIPRIL [Suspect]
     Active Substance: RAMIPRIL
  33. RAMIPRIL [Suspect]
     Active Substance: RAMIPRIL
  34. RAMIPRIL [Suspect]
     Active Substance: RAMIPRIL
  35. RAMIPRIL [Suspect]
     Active Substance: RAMIPRIL
  36. BISOPROLOL FUMARATE [Suspect]
     Active Substance: BISOPROLOL FUMARATE
     Indication: Cardiac failure chronic
  37. BISOPROLOL FUMARATE [Suspect]
     Active Substance: BISOPROLOL FUMARATE
     Indication: Cardiac failure
     Dosage: SALT NOT SPECIFIED
  38. FUROSEMIDE [Suspect]
     Active Substance: FUROSEMIDE
     Indication: Cardiac failure chronic
  39. VALSARTAN [Suspect]
     Active Substance: VALSARTAN
     Indication: Product used for unknown indication
  40. ROSUVASTATIN CALCIUM [Suspect]
     Active Substance: ROSUVASTATIN CALCIUM
     Indication: Cardiac failure chronic
     Route: 048
  41. SACUBITRIL [Suspect]
     Active Substance: SACUBITRIL
     Indication: Product used for unknown indication
  42. ENTRESTO [Concomitant]
     Active Substance: SACUBITRIL\VALSARTAN
     Indication: Product used for unknown indication
  43. ENTRESTO [Concomitant]
     Active Substance: SACUBITRIL\VALSARTAN

REACTIONS (7)
  - Myocardial infarction [Unknown]
  - Atrial fibrillation [Unknown]
  - Cardiac failure [Recovering/Resolving]
  - Cardiac failure chronic [Unknown]
  - Dyslipidaemia [Unknown]
  - Drug abuse [Unknown]
  - Off label use [Unknown]

NARRATIVE: CASE EVENT DATE: 20201001
